FAERS Safety Report 6767946-0 (Version None)
Quarter: 2010Q2

REPORT INFORMATION
  Report Type: 
  Country: None (occurrence: None)
  Receive Date: 20100610
  Receipt Date: 20100601
  Transmission Date: 20101027
  Serious: Yes (Death)
  Sender: FDA-Public Use
  Company Number: 20097638

PATIENT
  Age: 24 Year
  Sex: Female

DRUGS (8)
  1. BACLOFEN [Suspect]
     Indication: MUSCLE SPASTICITY
     Dosage: MCG, DAILY, INTRATHECAL
     Route: 037
  2. GAPABEN [Concomitant]
  3. RIVOTRIL [Concomitant]
  4. AMITRIPTYLINE HCL [Concomitant]
  5. LIORESAL [Concomitant]
  6. MORPHINE HYDROCHLORIDE [Concomitant]
  7. TEGRETOL [Concomitant]
  8. DANTRIUM [Concomitant]

REACTIONS (8)
  - BRAIN DEATH [None]
  - CENTRAL-ALVEOLAR HYPOVENTILATION [None]
  - COMPLETED SUICIDE [None]
  - DRUG INEFFECTIVE [None]
  - FEELING OF DESPAIR [None]
  - OVERDOSE [None]
  - PROCEDURAL PAIN [None]
  - RESPIRATORY ARREST [None]
